FAERS Safety Report 15847852 (Version 1)
Quarter: 2019Q1

REPORT INFORMATION
  Report Type: Spontaneous
  Country: US (occurrence: US)
  Receive Date: 20190121
  Receipt Date: 20190121
  Transmission Date: 20190417
  Serious: Yes (Other)
  Sender: FDA-Public Use
  Company Number: US-COOPERSURGICAL, INC.-US-2019CPS000073

PATIENT

DRUGS (2)
  1. AMITRIPTYLINE [Concomitant]
     Active Substance: AMITRIPTYLINE
     Indication: MIGRAINE
     Dosage: 20 MG, UNK
  2. PARAGARD T 380A [Suspect]
     Active Substance: COPPER
     Indication: CONTRACEPTION
     Dosage: UNK
     Route: 015
     Dates: start: 201105, end: 201703

REACTIONS (12)
  - Exposure during pregnancy [Recovered/Resolved]
  - Bacterial infection [Unknown]
  - Abortion spontaneous [Recovered/Resolved]
  - Infertility female [Not Recovered/Not Resolved]
  - Device expulsion [Recovered/Resolved]
  - Pain [Recovered/Resolved]
  - Premature labour [Recovered/Resolved]
  - Thrombosis [Recovered/Resolved]
  - High risk pregnancy [Recovered/Resolved]
  - Conjunctivitis [Recovered/Resolved]
  - Pregnancy with contraceptive device [Recovered/Resolved]
  - Drug ineffective [Unknown]

NARRATIVE: CASE EVENT DATE: 2017
